FAERS Safety Report 10091367 (Version 2)
Quarter: 2014Q2

REPORT INFORMATION
  Report Type: Report from Study
  Country: TR (occurrence: TR)
  Receive Date: 20140421
  Receipt Date: 20140520
  Transmission Date: 20141212
  Serious: Yes (Hospitalization)
  Sender: FDA-Public Use
  Company Number: TR-ABBVIE-14P-161-1227238-00

PATIENT
  Age: 42 Year
  Sex: Male
  Weight: 58 kg

DRUGS (2)
  1. HUMIRA [Suspect]
     Indication: ANKYLOSING SPONDYLITIS
     Route: 058
     Dates: start: 20080618, end: 20140411
  2. HUMIRA [Suspect]
     Dates: start: 20140509

REACTIONS (1)
  - Inguinal hernia [Recovered/Resolved]
